FAERS Safety Report 24982419 (Version 1)
Quarter: 2025Q1

REPORT INFORMATION
  Report Type: Report from Study
  Country: CO (occurrence: CO)
  Receive Date: 20250218
  Receipt Date: 20250218
  Transmission Date: 20250409
  Serious: Yes (Other)
  Sender: NOVARTIS
  Company Number: CO-002147023-NVSC2025CO025445

PATIENT
  Age: 61 Year
  Sex: Female
  Weight: 69 kg

DRUGS (16)
  1. TASIGNA [Suspect]
     Active Substance: NILOTINIB
     Indication: Chronic myeloid leukaemia
     Dosage: 200 MG, BID
     Route: 048
     Dates: start: 20120206
  2. TASIGNA [Suspect]
     Active Substance: NILOTINIB
     Dosage: 400 MG, Q12H
     Route: 048
     Dates: start: 20120222
  3. TASIGNA [Suspect]
     Active Substance: NILOTINIB
     Dosage: 400 MG, Q12H
     Route: 048
     Dates: start: 20120322
  4. TASIGNA [Suspect]
     Active Substance: NILOTINIB
     Dosage: 200 MG, QD
     Route: 048
  5. TASIGNA [Suspect]
     Active Substance: NILOTINIB
     Dosage: 800 MG, QD
     Route: 048
  6. TASIGNA [Suspect]
     Active Substance: NILOTINIB
     Dosage: UNK, QD
     Route: 048
  7. TASIGNA [Suspect]
     Active Substance: NILOTINIB
     Dosage: 200 MG, QD
     Route: 048
  8. TASIGNA [Suspect]
     Active Substance: NILOTINIB
     Route: 048
  9. TASIGNA [Suspect]
     Active Substance: NILOTINIB
     Dosage: 200 MG, QD
     Route: 048
  10. TASIGNA [Suspect]
     Active Substance: NILOTINIB
     Dosage: 1 DOSAGE FORM, QD
     Route: 048
  11. TASIGNA [Suspect]
     Active Substance: NILOTINIB
     Dosage: UNK, QD (4 OF 800 MG)
     Route: 048
  12. TASIGNA [Suspect]
     Active Substance: NILOTINIB
     Dosage: 200 MG, QD
     Route: 048
  13. LOSARTAN [Suspect]
     Active Substance: LOSARTAN
     Indication: Product used for unknown indication
     Route: 065
  14. ATORVASTATIN [Suspect]
     Active Substance: ATORVASTATIN
     Indication: Product used for unknown indication
     Route: 065
  15. ACETAMINOPHEN [Concomitant]
     Active Substance: ACETAMINOPHEN
     Indication: Product used for unknown indication
     Route: 065
  16. DRAMAMINE [Concomitant]
     Active Substance: DIMENHYDRINATE
     Indication: Product used for unknown indication
     Route: 065

REACTIONS (62)
  - Syncope [Unknown]
  - Intervertebral disc protrusion [Unknown]
  - Intervertebral disc injury [Unknown]
  - Venous occlusion [Unknown]
  - Gait disturbance [Unknown]
  - Memory impairment [Not Recovered/Not Resolved]
  - Cholelithiasis [Unknown]
  - General physical health deterioration [Unknown]
  - Limb injury [Unknown]
  - Skeletal injury [Unknown]
  - Tremor [Unknown]
  - Decreased appetite [Unknown]
  - Pain in extremity [Unknown]
  - Arthralgia [Unknown]
  - Fatigue [Unknown]
  - Vomiting [Unknown]
  - Diarrhoea [Unknown]
  - Urinary incontinence [Unknown]
  - Dyspepsia [Unknown]
  - Panic disorder [Unknown]
  - Illness [Unknown]
  - Musculoskeletal discomfort [Unknown]
  - Stress [Unknown]
  - Headache [Unknown]
  - Feeling abnormal [Unknown]
  - Head discomfort [Unknown]
  - Mood altered [Unknown]
  - Eating disorder [Unknown]
  - Decreased activity [Unknown]
  - Discomfort [Unknown]
  - Pain [Unknown]
  - Mental disorder [Unknown]
  - Eye inflammation [Unknown]
  - Eye discharge [Unknown]
  - Oropharyngeal discomfort [Unknown]
  - Weight decreased [Unknown]
  - Swelling face [Unknown]
  - Oral disorder [Unknown]
  - Decreased appetite [Recovered/Resolved]
  - Visual impairment [Unknown]
  - Bone pain [Recovered/Resolved]
  - Vertigo [Unknown]
  - Dizziness [Recovered/Resolved]
  - Amnesia [Unknown]
  - Hypertension [Unknown]
  - Blood cholesterol increased [Unknown]
  - Insomnia [Unknown]
  - Malaise [Unknown]
  - Dizziness [Unknown]
  - Influenza [Unknown]
  - Dysphonia [Unknown]
  - Muscle spasms [Unknown]
  - Confusional state [Unknown]
  - Dry eye [Unknown]
  - Hypoacusis [Unknown]
  - Body temperature increased [Unknown]
  - Cough [Unknown]
  - Asthenia [Recovered/Resolved]
  - Inappropriate schedule of product administration [Unknown]
  - Ill-defined disorder [Unknown]
  - Incontinence [Unknown]
  - Off label use [Unknown]

NARRATIVE: CASE EVENT DATE: 20120206
